FAERS Safety Report 7600061-2 (Version None)
Quarter: 2011Q3

REPORT INFORMATION
  Report Type: 
  Country: None (occurrence: None)
  Receive Date: 20110706
  Receipt Date: 20110706
  Transmission Date: 20111222
  Serious: Yes (Other)
  Sender: FDA-Public Use
  Company Number: None

PATIENT
  Age: 18 Year
  Sex: Male

DRUGS (1)
  1. AK-FLUOR 10% [Suspect]
     Indication: ANGIOGRAM
     Dosage: 5 ML OPHTHALMIC
     Route: 047
     Dates: start: 20110615, end: 20110615

REACTIONS (1)
  - URTICARIA [None]
